FAERS Safety Report 16802894 (Version 1)
Quarter: 2019Q3

REPORT INFORMATION
  Report Type: Report from Study
  Country: EG (occurrence: EG)
  Receive Date: 20190913
  Receipt Date: 20190913
  Transmission Date: 20191005
  Serious: Yes (Hospitalization)
  Sender: FDA-Public Use
  Company Number: PHHY2019EG212238

PATIENT
  Age: 64 Year
  Sex: Female
  Weight: 140 kg

DRUGS (1)
  1. GLIVEC [Suspect]
     Active Substance: IMATINIB MESYLATE
     Indication: CHRONIC MYELOID LEUKAEMIA
     Dosage: 400 MG, QD
     Route: 048
     Dates: start: 2011

REACTIONS (6)
  - Hypertension [Recovering/Resolving]
  - Peripheral swelling [Recovering/Resolving]
  - Erythema [Recovering/Resolving]
  - Chest pain [Not Recovered/Not Resolved]
  - Cytogenetic analysis abnormal [Unknown]
  - Dyspnoea [Not Recovered/Not Resolved]

NARRATIVE: CASE EVENT DATE: 2014
